FAERS Safety Report 19271911 (Version 1)
Quarter: 2021Q2

REPORT INFORMATION
  Report Type: Spontaneous
  Country: US (occurrence: US)
  Receive Date: 20210519
  Receipt Date: 20210519
  Transmission Date: 20210717
  Serious: No
  Sender: FDA-Public Use
  Company Number: US-NOVEN PHARMACEUTICALS, INC.-2021US000320

PATIENT
  Age: 8 Year
  Sex: Female

DRUGS (3)
  1. DAYTRANA [Suspect]
     Active Substance: METHYLPHENIDATE
     Dosage: 10 MG/9 HOURS, 1 PATCH DAILY
     Route: 062
     Dates: start: 202008, end: 202009
  2. CLONIDINE. [Concomitant]
     Active Substance: CLONIDINE
     Indication: INSOMNIA
     Dosage: UNK, AT NIGHT
     Route: 065
  3. DAYTRANA [Suspect]
     Active Substance: METHYLPHENIDATE
     Indication: ATTENTION DEFICIT HYPERACTIVITY DISORDER
     Dosage: 15 MG/9 HOURS, 1 PATCH DAILY
     Route: 062
     Dates: start: 202009

REACTIONS (7)
  - Device difficult to use [Not Recovered/Not Resolved]
  - Application site pain [Not Recovered/Not Resolved]
  - Device breakage [Not Recovered/Not Resolved]
  - Product residue present [Not Recovered/Not Resolved]
  - Product administration error [Not Recovered/Not Resolved]
  - Accidental exposure to product [Recovered/Resolved]
  - Device adhesion issue [Not Recovered/Not Resolved]

NARRATIVE: CASE EVENT DATE: 202101
